FAERS Safety Report 9245797 (Version 2)
Quarter: 2013Q3

REPORT INFORMATION
  Report Type: Spontaneous
  Country: US (occurrence: US)
  Receive Date: 20130422
  Receipt Date: 20130724
  Transmission Date: 20140515
  Serious: No
  Sender: FDA-Public Use
  Company Number: US-BRISTOL-MYERS SQUIBB COMPANY-17412859

PATIENT
  Age: 64 Year
  Sex: Female

DRUGS (9)
  1. ELIQUIS [Suspect]
     Indication: CEREBROVASCULAR ACCIDENT
     Dosage: FILM COATED TAB
     Route: 048
     Dates: start: 20130214, end: 20130218
  2. ACETYLSALICYLIC ACID [Suspect]
     Indication: CORONARY ARTERY DISEASE
     Route: 048
  3. PLAVIX [Suspect]
     Indication: PERCUTANEOUS CORONARY INTERVENTION
     Route: 048
     Dates: start: 20100820
  4. METOPROLOL SUCCINATE [Concomitant]
  5. LISINOPRIL [Concomitant]
  6. LIPITOR [Concomitant]
  7. LASIX [Concomitant]
     Dosage: ALSO20MG
  8. MULTIVITAMIN [Concomitant]
  9. RANEXA [Concomitant]

REACTIONS (1)
  - Rectal haemorrhage [Recovered/Resolved]
